FAERS Safety Report 20376287 (Version 3)
Quarter: 2022Q2

REPORT INFORMATION
  Report Type: Spontaneous
  Country: ID (occurrence: None)
  Receive Date: 20220125
  Receipt Date: 20220406
  Transmission Date: 20220721
  Serious: Yes (Disabling)
  Sender: FDA-Public Use
  Company Number: ID-Merck Healthcare KGaA-9290947

PATIENT
  Sex: Female

DRUGS (1)
  1. EUTHYROX [Suspect]
     Active Substance: LEVOTHYROXINE SODIUM
     Indication: Post procedural hypothyroidism

REACTIONS (8)
  - Tendon disorder [Unknown]
  - Tendonitis [Unknown]
  - Hypothyroidism [Unknown]
  - Disease complication [Unknown]
  - Generalised oedema [Unknown]
  - Asthenia [Unknown]
  - Muscular weakness [Unknown]
  - Suspected counterfeit product [Unknown]

NARRATIVE: CASE EVENT DATE: 20210101
